FAERS Safety Report 17597822 (Version 1)
Quarter: 2020Q1

REPORT INFORMATION
  Report Type: Spontaneous
  Country: US (occurrence: US)
  Receive Date: 20200330
  Receipt Date: 20200330
  Transmission Date: 20200409
  Serious: No
  Sender: FDA-Public Use
  Company Number: US-PFIZER INC-2018488867

PATIENT
  Age: 28 Year
  Sex: Female

DRUGS (4)
  1. XELJANZ [Suspect]
     Active Substance: TOFACITINIB CITRATE
     Dosage: 15 MG, DAILY (1 TABLET IN THE MORNING AND 2 TABLETS IN THE EVENING)
  2. XELJANZ [Suspect]
     Active Substance: TOFACITINIB CITRATE
     Dosage: 5 MG, 3X/DAY (1 TIME IN THE MORNING AND 2TIMES IN THE AFTERNOON)
  3. XELJANZ [Suspect]
     Active Substance: TOFACITINIB CITRATE
     Dosage: 10 MG, 2X/DAY (10MG IN THE MORNING AND 10MG AT NIGH)
  4. XELJANZ [Suspect]
     Active Substance: TOFACITINIB CITRATE
     Dosage: 20 MG, DAILY (5 MG / QTY 120 / DAYS SUPPLY 30)

REACTIONS (2)
  - Colitis [Unknown]
  - Off label use [Unknown]
